FAERS Safety Report 21638753 (Version 4)
Quarter: 2022Q4

REPORT INFORMATION
  Report Type: Report from Study
  Country: JP (occurrence: JP)
  Receive Date: 20221124
  Receipt Date: 20221230
  Transmission Date: 20230113
  Serious: Yes (Hospitalization)
  Sender: FDA-Public Use
  Company Number: JP-PFIZER INC-PV202200105151

PATIENT
  Age: 77 Year
  Sex: Male
  Weight: 59.4 kg

DRUGS (15)
  1. LEVOLEUCOVORIN CALCIUM [Suspect]
     Active Substance: LEVOLEUCOVORIN CALCIUM
     Indication: Colorectal cancer metastatic
     Dosage: 335.8 MG, EVERY TWO WEEKS
     Route: 042
     Dates: start: 20220603, end: 20221026
  2. BEVACIZUMAB [Suspect]
     Active Substance: BEVACIZUMAB
     Indication: Colorectal cancer metastatic
     Dosage: 300 MG, EVERY TWO WEEKS
     Route: 042
     Dates: start: 20220603, end: 20221026
  3. FLUOROURACIL [Suspect]
     Active Substance: FLUOROURACIL
     Indication: Colorectal cancer metastatic
     Dosage: 671.6 MG, EVERY TWO WEEKS, DOSE FOR IV BOLUS
     Route: 042
     Dates: start: 20220603, end: 20221026
  4. FLUOROURACIL [Suspect]
     Active Substance: FLUOROURACIL
     Dosage: 4029.6 MG, EVERY TWO WEEKS, DOSE FOR IV INFUSION
     Route: 042
     Dates: start: 20220603, end: 20221026
  5. OXALIPLATIN [Suspect]
     Active Substance: OXALIPLATIN
     Indication: Colorectal cancer metastatic
     Dosage: 109.1 MG, EVERY TWO WEEKS
     Route: 042
     Dates: start: 20220603, end: 20221026
  6. ALOXI [Concomitant]
     Active Substance: PALONOSETRON HYDROCHLORIDE
     Indication: Prophylaxis
     Dosage: UNK
     Dates: start: 20220603, end: 20221026
  7. DEXAMETHASONE SODIUM PHOSPHATE [Concomitant]
     Active Substance: DEXAMETHASONE SODIUM PHOSPHATE
     Indication: Prophylaxis
     Dosage: UNK
     Dates: start: 20220603, end: 20221026
  8. DEXTROSE [Concomitant]
     Active Substance: DEXTROSE
     Indication: Fluid replacement
     Dosage: OTSUKA GLUCOSE INJECTION
     Dates: start: 20220603, end: 20221026
  9. DEXTROSE [Concomitant]
     Active Substance: DEXTROSE
     Indication: Fluid replacement
     Dosage: PURIFIED GLUCOSE
     Dates: start: 20220603, end: 20221026
  10. DUTASTERIDE [Concomitant]
     Active Substance: DUTASTERIDE
     Indication: Benign prostatic hyperplasia
     Dosage: UNK
     Dates: start: 2011
  11. DISTIGMINE BROMIDE [Concomitant]
     Active Substance: DISTIGMINE BROMIDE
     Indication: Benign prostatic hyperplasia
     Dosage: UNK
     Dates: start: 2011
  12. SILODOSIN [Concomitant]
     Active Substance: SILODOSIN
     Indication: Benign prostatic hyperplasia
     Dosage: UNK
     Dates: start: 2011
  13. MAGNESIUM OXIDE [Concomitant]
     Active Substance: MAGNESIUM OXIDE
     Indication: Constipation
     Dosage: UNK
     Dates: start: 202111
  14. POSTERISAN FORTE [ESCHERICHIA COLI, LYOPHILIZED;HYDROCORTISONE;PARAFFI [Concomitant]
     Indication: Constipation
     Dosage: UNK
     Dates: start: 20220831, end: 20220928
  15. HACHIAZULE [SODIUM BICARBONATE;SODIUM GUALENATE] [Concomitant]
     Indication: Stomatitis
     Dosage: UNK
     Dates: start: 20220928

REACTIONS (1)
  - Pneumonitis [Recovering/Resolving]

NARRATIVE: CASE EVENT DATE: 20221102
